FAERS Safety Report 20136114 (Version 1)
Quarter: 2021Q4

REPORT INFORMATION
  Report Type: Spontaneous
  Country: US (occurrence: None)
  Receive Date: 20211201
  Receipt Date: 20211201
  Transmission Date: 20220303
  Serious: Yes (Hospitalization)
  Sender: FDA-Public Use
  Company Number: None

PATIENT
  Sex: Female

DRUGS (1)
  1. CAPECITABINE [Suspect]
     Active Substance: CAPECITABINE
     Indication: Pancreatic carcinoma
     Dosage: TAKE 3 TABLETS BY MOUTH TWICE DAILY ON DAYS 1-21 DAY CYCLE ?TAKE WITH WATER WITHIN 30 MINUTES OF AME
     Route: 048
     Dates: start: 20210909

REACTIONS (1)
  - Hospitalisation [None]
